FAERS Safety Report 4297759-3 (Version None)
Quarter: 2004Q1

REPORT INFORMATION
  Report Type: 
  Country: None (occurrence: None)
  Receive Date: 20040126
  Receipt Date: 20030919
  Transmission Date: 20041129
  Serious: No
  Sender: FDA-Public Use
  Company Number: USA030947720

PATIENT
  Age: 13 Year
  Sex: Male
  Weight: 71 kg

DRUGS (3)
  1. STRATTERA [Suspect]
     Dosage: 80 MG
     Dates: start: 20030701
  2. TEGRETOL [Concomitant]
  3. CLARINEX [Concomitant]

REACTIONS (4)
  - CRYING [None]
  - DEPRESSION [None]
  - DISTURBANCE IN ATTENTION [None]
  - FEELING ABNORMAL [None]
